FAERS Safety Report 16892760 (Version 1)
Quarter: 2019Q4

REPORT INFORMATION
  Report Type: Spontaneous
  Country: US (occurrence: US)
  Receive Date: 20191007
  Receipt Date: 20191007
  Transmission Date: 20200122
  Serious: No
  Sender: FDA-Public Use
  Company Number: US-VIFOR (INTERNATIONAL) INC.-VIT-2019-08779

PATIENT
  Sex: Female

DRUGS (20)
  1. COREG [Concomitant]
     Active Substance: CARVEDILOL
  2. COLLAGENASE SANTYL [Concomitant]
     Active Substance: COLLAGENASE CLOSTRIDIUM HISTOLYTICUM
  3. NEURONTIN [Concomitant]
     Active Substance: GABAPENTIN
  4. MELATONIN [Concomitant]
     Active Substance: MELATONIN
     Dosage: 1.5 TABS TAKEN EVERY NIGHT
  5. SODIUM POLYSTYRENE [Concomitant]
     Active Substance: SODIUM POLYSTYRENE SULFONATE
     Dosage: ON A SLIDING SCALE.
  6. VELTASSA [Suspect]
     Active Substance: PATIROMER
     Indication: HYPERKALAEMIA
     Dates: start: 2019
  7. ALBUTEROL. [Concomitant]
     Active Substance: ALBUTEROL
     Dosage: 2 PUFFS
  8. HUMALOG [Concomitant]
     Active Substance: INSULIN LISPRO
     Dosage: 0-6 U
  9. ZYRTEC [Concomitant]
     Active Substance: CETIRIZINE HYDROCHLORIDE
  10. B COMPLEX FOLIC ACID [Concomitant]
  11. CELEXA [Concomitant]
     Active Substance: CITALOPRAM HYDROBROMIDE
  12. IRON [Concomitant]
     Active Substance: IRON
  13. LASIX [Concomitant]
     Active Substance: FUROSEMIDE
  14. RENVELA [Concomitant]
     Active Substance: SEVELAMER CARBONATE
  15. COLACE [Concomitant]
     Active Substance: DOCUSATE SODIUM
     Route: 048
  16. BISACODYL. [Concomitant]
     Active Substance: BISACODYL
  17. LANTUS [Concomitant]
     Active Substance: INSULIN GLARGINE
  18. VIT D [Concomitant]
     Active Substance: VITAMIN D NOS
  19. ARICEPT [Concomitant]
     Active Substance: DONEPEZIL HYDROCHLORIDE
  20. TYLENOL [Concomitant]
     Active Substance: ACETAMINOPHEN

REACTIONS (2)
  - Product storage error [Unknown]
  - No adverse event [Unknown]

NARRATIVE: CASE EVENT DATE: 2019
